FAERS Safety Report 9746490 (Version 1)
Quarter: 2013Q4

REPORT INFORMATION
  Report Type: Spontaneous
  Country: BR (occurrence: None)
  Receive Date: 20131205
  Receipt Date: 20131205
  Transmission Date: 20140711
  Serious: Yes (Death)
  Sender: FDA-Public Use
  Company Number: DSU-2013-05233

PATIENT
  Age: 74 Year
  Sex: Female

DRUGS (1)
  1. OLMETEC [Suspect]
     Indication: BLOOD PRESSURE
     Route: 048

REACTIONS (1)
  - Hepatic cancer [None]
